FAERS Safety Report 9758840 (Version 1)
Quarter: 2013Q4

REPORT INFORMATION
  Report Type: Spontaneous
  Country: US (occurrence: None)
  Receive Date: 20131216
  Receipt Date: 20131216
  Transmission Date: 20140711
  Serious: Yes (Other)
  Sender: FDA-Public Use
  Company Number: 075197

PATIENT
  Sex: Male

DRUGS (1)
  1. CIMZIA [Suspect]
     Indication: CROHN^S DISEASE
     Dosage: (400 MG 1X/MONTH), (400 MG 2X/MONTH)

REACTIONS (6)
  - Crohn^s disease [None]
  - Muscle spasms [None]
  - Dyspnoea [None]
  - Asthenia [None]
  - Impaired healing [None]
  - Drug ineffective [None]
